FAERS Safety Report 5825596-4 (Version None)
Quarter: 2008Q3

REPORT INFORMATION
  Report Type: 
  Country: None (occurrence: None)
  Receive Date: 20080729
  Receipt Date: 20080721
  Transmission Date: 20090109
  Serious: Yes (Other)
  Sender: FDA-Public Use
  Company Number: A0736245A

PATIENT
  Age: 31 Year
  Sex: Female

DRUGS (2)
  1. PAROXETINE HCL [Suspect]
     Indication: DRUG USE FOR UNKNOWN INDICATION
     Dosage: 10MG PER DAY
     Route: 048
     Dates: start: 20080626
  2. CLONAZEPAM [Concomitant]

REACTIONS (4)
  - CONTUSION [None]
  - DYSSTASIA [None]
  - MUSCLE SPASMS [None]
  - MYALGIA [None]
